FAERS Safety Report 11812798 (Version 1)
Quarter: 2015Q4

REPORT INFORMATION
  Report Type: Spontaneous
  Country: US (occurrence: US)
  Receive Date: 20151209
  Receipt Date: 20151209
  Transmission Date: 20160305
  Serious: Yes (Other)
  Sender: FDA-Public Use
  Company Number: US-HOSPIRA-2550311

PATIENT
  Sex: Female

DRUGS (3)
  1. AMINOPHYLLINE. [Suspect]
     Active Substance: AMINOPHYLLINE
     Indication: PRODUCT USE ISSUE
     Dosage: TWICE
     Route: 065
  2. LEXISCAN [Suspect]
     Active Substance: REGADENOSON
     Indication: CARDIAC STRESS TEST
     Dosage: UNKNOWN, UNKNOWN
     Route: 065
  3. AMINOPHYLLINE. [Suspect]
     Active Substance: AMINOPHYLLINE
     Indication: CHEST PAIN
     Dosage: TWICE
     Route: 065

REACTIONS (2)
  - Seizure [Unknown]
  - Drug ineffective for unapproved indication [Unknown]
